FAERS Safety Report 7231268-4 (Version None)
Quarter: 2011Q1

REPORT INFORMATION
  Report Type: 
  Country: None (occurrence: None)
  Receive Date: 20110118
  Receipt Date: 20110112
  Transmission Date: 20110831
  Serious: Yes (Hospitalization)
  Sender: FDA-Public Use
  Company Number: JP-ROCHE-753261

PATIENT
  Age: 1 Year
  Sex: Female

DRUGS (4)
  1. TACROLIMUS [Concomitant]
     Route: 065
  2. PREDNISOLONE [Concomitant]
     Dosage: DOSAGE IS UNCERTAIN.
     Route: 065
  3. BASILIXIMAB [Concomitant]
     Dosage: OSAGE IS UNCERTAIN.
     Route: 041
  4. CELLCEPT [Suspect]
     Indication: PROPHYLAXIS AGAINST TRANSPLANT REJECTION
     Dosage: DOSAGE IS UNCERTAIN.
     Route: 048

REACTIONS (1)
  - FOOD ALLERGY [None]
